FAERS Safety Report 12752119 (Version 1)
Quarter: 2016Q3

REPORT INFORMATION
  Report Type: Spontaneous
  Country: US (occurrence: US)
  Receive Date: 20160915
  Receipt Date: 20160915
  Transmission Date: 20161109
  Serious: Yes (Hospitalization)
  Sender: FDA-Public Use
  Company Number: None

PATIENT
  Age: 58 Year
  Sex: Male
  Weight: 88.5 kg

DRUGS (8)
  1. AMOXICLAVULIN [Concomitant]
  2. PIPTAZO [Concomitant]
  3. TAMIFLU [Concomitant]
     Active Substance: OSELTAMIVIR PHOSPHATE
  4. CISPLATIN. [Suspect]
     Active Substance: CISPLATIN
     Dates: end: 20160119
  5. FLUCONAZOLE. [Concomitant]
     Active Substance: FLUCONAZOLE
  6. VANCOMYCIN [Concomitant]
     Active Substance: VANCOMYCIN
  7. PROCHLORPERZINE [Concomitant]
  8. RANITIDINE. [Concomitant]
     Active Substance: RANITIDINE

REACTIONS (5)
  - Influenza [None]
  - Pneumonia [None]
  - Blood count abnormal [None]
  - Drug ineffective [None]
  - Pyrexia [None]

NARRATIVE: CASE EVENT DATE: 20160201
